FAERS Safety Report 7967950-0 (Version None)
Quarter: 2011Q4

REPORT INFORMATION
  Report Type: 
  Country: None (occurrence: None)
  Receive Date: 20111207
  Receipt Date: 20111124
  Transmission Date: 20120403
  Serious: Yes (Hospitalization)
  Sender: FDA-Public Use
  Company Number: TCI2011A01675

PATIENT
  Age: 7 Decade
  Sex: Male

DRUGS (3)
  1. OLMESARTAN MEDOXOMIL [Concomitant]
  2. CONIEL (BENIDIPINE HYDROCHLORIDE) [Concomitant]
  3. LANSOPRAZOLE [Suspect]
     Indication: PROPHYLAXIS AGAINST GASTROINTESTINAL ULCER
     Dosage: 15 MG (15 MG,1 IN 1 D) NASOGASTRIC TUBE
     Dates: start: 20110210, end: 20110224

REACTIONS (2)
  - HAEMATEMESIS [None]
  - ULCER HAEMORRHAGE [None]
